FAERS Safety Report 25229220 (Version 2)
Quarter: 2025Q2

REPORT INFORMATION
  Report Type: Spontaneous
  Country: US (occurrence: US)
  Receive Date: 20250423
  Receipt Date: 20250425
  Transmission Date: 20250716
  Serious: Yes (Other)
  Sender: BAYER HEALTHCARE LLC
  Company Number: US-BAYER-2025A053154

PATIENT

DRUGS (2)
  1. AFRIN NO DRIP ORIGINAL PUMP MIST [Suspect]
     Active Substance: OXYMETAZOLINE HYDROCHLORIDE
     Indication: Sinus disorder
  2. DRISTAN 12 HR NASAL SPRAY [Suspect]
     Active Substance: OXYMETAZOLINE HYDROCHLORIDE

REACTIONS (5)
  - Drug dependence [None]
  - Epistaxis [Not Recovered/Not Resolved]
  - Sinus disorder [None]
  - Rhinitis [None]
  - Incorrect product administration duration [None]
